FAERS Safety Report 12360396 (Version 2)
Quarter: 2016Q3

REPORT INFORMATION
  Report Type: Spontaneous
  Country: US (occurrence: US)
  Receive Date: 20160512
  Receipt Date: 20160902
  Transmission Date: 20161109
  Serious: Yes (Hospitalization)
  Sender: FDA-Public Use
  Company Number: US-RELYPSA-RLY2016000564

PATIENT
  Age: 62 Year
  Sex: Male

DRUGS (12)
  1. FUROSEMIDE. [Concomitant]
     Active Substance: FUROSEMIDE
  2. CARVEDILOL. [Concomitant]
     Active Substance: CARVEDILOL
  3. HUMULIN N [Concomitant]
     Active Substance: INSULIN HUMAN
  4. HUMALOG [Concomitant]
     Active Substance: INSULIN LISPRO
  5. DIOVAN [Concomitant]
     Active Substance: VALSARTAN
  6. GABAPENTIN. [Concomitant]
     Active Substance: GABAPENTIN
  7. VITAMIN D3 [Concomitant]
     Active Substance: CHOLECALCIFEROL
  8. NOVOLOG [Concomitant]
     Active Substance: INSULIN ASPART
  9. TACROLIMUS. [Concomitant]
     Active Substance: TACROLIMUS
  10. VELTASSA [Suspect]
     Active Substance: PATIROMER
     Indication: HYPERKALAEMIA
     Dosage: 8.4 G, QD
     Route: 048
     Dates: start: 20160415, end: 2016
  11. PREDNISONE. [Concomitant]
     Active Substance: PREDNISONE
  12. NIFEDICAL XL [Concomitant]
     Active Substance: NIFEDIPINE

REACTIONS (2)
  - Drug dose omission [Not Recovered/Not Resolved]
  - Cellulitis [Unknown]

NARRATIVE: CASE EVENT DATE: 201608
